FAERS Safety Report 7556958-5 (Version None)
Quarter: 2011Q2

REPORT INFORMATION
  Report Type: 
  Country: None (occurrence: None)
  Receive Date: 20110620
  Receipt Date: 20110608
  Transmission Date: 20111010
  Serious: Yes (Other)
  Sender: FDA-Public Use
  Company Number: PHHY2011DE51250

PATIENT
  Age: 13 Year
  Sex: Male

DRUGS (1)
  1. RITALIN [Suspect]
     Dosage: UNK UKN, UNK
     Route: 048

REACTIONS (2)
  - HYPERCALCAEMIA [None]
  - PARATHYROID TUMOUR BENIGN [None]
